FAERS Safety Report 9176746 (Version 1)
Quarter: 2013Q1

REPORT INFORMATION
  Report Type: Spontaneous
  Country: VE (occurrence: VE)
  Receive Date: 20130321
  Receipt Date: 20130321
  Transmission Date: 20140127
  Serious: Yes (Death)
  Sender: FDA-Public Use
  Company Number: VE-PFIZER INC-2013092727

PATIENT
  Age: 71 Year
  Sex: Male

DRUGS (2)
  1. LIPITOR [Suspect]
     Dosage: 20 MG, UNK
  2. LYRICA [Concomitant]
     Dosage: 75 MG, UNK

REACTIONS (1)
  - Death [Fatal]
